FAERS Safety Report 11424699 (Version 1)
Quarter: 2015Q3

REPORT INFORMATION
  Report Type: Spontaneous
  Country: US (occurrence: US)
  Receive Date: 20150827
  Receipt Date: 20150827
  Transmission Date: 20151125
  Serious: No
  Sender: FDA-Public Use
  Company Number: US-BAYER-2015-406469

PATIENT
  Age: 82 Year
  Sex: Female
  Weight: 52.61 kg

DRUGS (2)
  1. AMIODARONE [Concomitant]
     Active Substance: AMIODARONE
  2. ALEVE [Suspect]
     Active Substance: NAPROXEN SODIUM
     Indication: ANALGESIC THERAPY
     Dosage: 1 DF, QD WITH FOOD
     Route: 048
     Dates: start: 201508, end: 20150816

REACTIONS (2)
  - Product use issue [Unknown]
  - Dizziness [Recovered/Resolved]

NARRATIVE: CASE EVENT DATE: 201508
